FAERS Safety Report 7204258-5 (Version None)
Quarter: 2010Q4

REPORT INFORMATION
  Report Type: 
  Country: None (occurrence: None)
  Receive Date: 20101230
  Receipt Date: 20101228
  Transmission Date: 20110411
  Serious: Yes (Life-Threatening)
  Sender: FDA-Public Use
  Company Number: IT-PFIZER INC-2010180719

PATIENT
  Age: 76 Year
  Sex: Male

DRUGS (10)
  1. UNASYN [Suspect]
     Indication: PNEUMONIA BACTERIAL
     Dosage: 3000 MG, AS NEEDED
     Route: 042
     Dates: start: 20101207, end: 20101207
  2. TAVANIC [Suspect]
     Indication: PNEUMONIA BACTERIAL
     Dosage: 5 MG, AS NEEDED
     Route: 042
     Dates: start: 20101207, end: 20101207
  3. LANSOPRAZOLE [Concomitant]
     Dosage: 30 MG
     Dates: start: 20101006, end: 20101207
  4. BISOPROLOL FUMARATE [Concomitant]
     Dosage: 1.25 MG
     Dates: start: 20101011, end: 20101207
  5. ACETYLSALICYLIC ACID [Concomitant]
     Dosage: UNK
     Dates: start: 20101122, end: 20101207
  6. NITROGLICERINA [Concomitant]
     Dosage: UNK
     Route: 062
     Dates: start: 20101006, end: 20101207
  7. FERLIXIT [Concomitant]
     Dosage: 1 G
     Dates: start: 20101007, end: 20101207
  8. FLUIMUCIL [Concomitant]
     Dosage: 200 MG
     Dates: start: 20101021, end: 20101207
  9. INSULIN DETEMIR [Concomitant]
     Dosage: UNK
     Dates: start: 20101112, end: 20101207
  10. CLEXANE [Concomitant]
     Dosage: UNK
     Dates: start: 20101207, end: 20101207

REACTIONS (3)
  - PERIORBITAL OEDEMA [None]
  - RASH [None]
  - URTICARIA [None]
